FAERS Safety Report 23825282 (Version 1)
Quarter: 2024Q2

REPORT INFORMATION
  Report Type: Spontaneous
  Country: GH (occurrence: GH)
  Receive Date: 20240507
  Receipt Date: 20240507
  Transmission Date: 20240716
  Serious: Yes (Death, Other)
  Sender: FDA-Public Use
  Company Number: GH-SUN PHARMACEUTICAL INDUSTRIES LTD-2024R1-445266

PATIENT
  Age: 26 Year
  Sex: Male

DRUGS (35)
  1. BISOPROLOL [Suspect]
     Active Substance: BISOPROLOL\BISOPROLOL FUMARATE
     Indication: Ventricular septal defect
     Dosage: 2.5 MILLIGRAM, DAILY
     Route: 048
  2. BISOPROLOL [Suspect]
     Active Substance: BISOPROLOL\BISOPROLOL FUMARATE
     Indication: Mitral valve incompetence
     Dosage: 5 MILLIGRAM, DAILY
     Route: 048
  3. BISOPROLOL [Suspect]
     Active Substance: BISOPROLOL\BISOPROLOL FUMARATE
     Indication: Pulmonary hypertension
  4. BISOPROLOL [Suspect]
     Active Substance: BISOPROLOL\BISOPROLOL FUMARATE
     Indication: Cardiac failure
  5. BISOPROLOL [Suspect]
     Active Substance: BISOPROLOL\BISOPROLOL FUMARATE
     Indication: Atrial fibrillation
  6. DIGOXIN [Suspect]
     Active Substance: DIGOXIN
     Indication: Ventricular septal defect
     Dosage: 125 MICROGRAM
     Route: 065
  7. DIGOXIN [Suspect]
     Active Substance: DIGOXIN
     Indication: Mitral valve incompetence
  8. DIGOXIN [Suspect]
     Active Substance: DIGOXIN
     Indication: Pulmonary hypertension
  9. DIGOXIN [Suspect]
     Active Substance: DIGOXIN
     Indication: Cardiac failure
  10. DIGOXIN [Suspect]
     Active Substance: DIGOXIN
     Indication: Atrial fibrillation
  11. FUROSEMIDE [Suspect]
     Active Substance: FUROSEMIDE
     Indication: Ventricular septal defect
     Dosage: 40 MILLIGRAM, BID
     Route: 051
  12. FUROSEMIDE [Suspect]
     Active Substance: FUROSEMIDE
     Indication: Mitral valve incompetence
  13. FUROSEMIDE [Suspect]
     Active Substance: FUROSEMIDE
     Indication: Pulmonary hypertension
  14. FUROSEMIDE [Suspect]
     Active Substance: FUROSEMIDE
     Indication: Cardiac failure
  15. FUROSEMIDE [Suspect]
     Active Substance: FUROSEMIDE
     Indication: Atrial fibrillation
  16. LISINOPRIL [Suspect]
     Active Substance: LISINOPRIL
     Indication: Ventricular septal defect
     Dosage: 5 MILLIGRAM, QD
     Route: 048
  17. LISINOPRIL [Suspect]
     Active Substance: LISINOPRIL
     Indication: Mitral valve incompetence
  18. LISINOPRIL [Suspect]
     Active Substance: LISINOPRIL
     Indication: Pulmonary hypertension
  19. LISINOPRIL [Suspect]
     Active Substance: LISINOPRIL
     Indication: Cardiac failure
  20. LISINOPRIL [Suspect]
     Active Substance: LISINOPRIL
     Indication: Atrial fibrillation
  21. TADALAFIL [Suspect]
     Active Substance: TADALAFIL
     Indication: Ventricular septal defect
     Dosage: 20 MILLIGRAM, QD
     Route: 048
  22. TADALAFIL [Suspect]
     Active Substance: TADALAFIL
     Indication: Mitral valve incompetence
  23. TADALAFIL [Suspect]
     Active Substance: TADALAFIL
     Indication: Pulmonary hypertension
  24. TADALAFIL [Suspect]
     Active Substance: TADALAFIL
     Indication: Cardiac failure
  25. TADALAFIL [Suspect]
     Active Substance: TADALAFIL
     Indication: Atrial fibrillation
  26. WARFARIN [Suspect]
     Active Substance: WARFARIN
     Indication: Ventricular septal defect
     Dosage: 5 MILLIGRAM, QD
     Route: 048
  27. WARFARIN [Suspect]
     Active Substance: WARFARIN
     Indication: Mitral valve incompetence
  28. WARFARIN [Suspect]
     Active Substance: WARFARIN
     Indication: Pulmonary hypertension
  29. WARFARIN [Suspect]
     Active Substance: WARFARIN
     Indication: Cardiac failure
  30. WARFARIN [Suspect]
     Active Substance: WARFARIN
     Indication: Atrial fibrillation
  31. EPLERENONE [Suspect]
     Active Substance: EPLERENONE
     Indication: Ventricular septal defect
     Dosage: 25 MILLIGRAM, QD
     Route: 048
  32. EPLERENONE [Suspect]
     Active Substance: EPLERENONE
     Indication: Mitral valve incompetence
  33. EPLERENONE [Suspect]
     Active Substance: EPLERENONE
     Indication: Pulmonary hypertension
  34. EPLERENONE [Suspect]
     Active Substance: EPLERENONE
     Indication: Cardiac failure
  35. EPLERENONE [Suspect]
     Active Substance: EPLERENONE
     Indication: Atrial fibrillation

REACTIONS (2)
  - Cardiac death [Fatal]
  - Condition aggravated [Fatal]
